FAERS Safety Report 24067265 (Version 1)
Quarter: 2024Q3

REPORT INFORMATION
  Report Type: Report from Study
  Country: CA (occurrence: CA)
  Receive Date: 20240709
  Receipt Date: 20240709
  Transmission Date: 20241016
  Serious: No
  Sender: ROCHE
  Company Number: CA-ROCHE-10000018796

PATIENT
  Sex: Female

DRUGS (1)
  1. OCREVUS [Suspect]
     Active Substance: OCRELIZUMAB
     Indication: Primary progressive multiple sclerosis
     Dosage: MORE DOSAGE INFORMATION IS 300 MG AT DAY 0 AND 14, THEN 600 MG EVERY 6 MONTHS
     Route: 042
     Dates: start: 20171027

REACTIONS (7)
  - Fall [Unknown]
  - Vulvovaginal injury [Recovered/Resolved]
  - Infection [Recovered/Resolved]
  - Pharyngitis streptococcal [Recovered/Resolved]
  - Gastrooesophageal reflux disease [Recovering/Resolving]
  - Oral candidiasis [Recovered/Resolved]
  - Erythema [Not Recovered/Not Resolved]
